FAERS Safety Report 5522311-9 (Version None)
Quarter: 2007Q4

REPORT INFORMATION
  Report Type: 
  Country: None (occurrence: None)
  Receive Date: 20071120
  Receipt Date: 20071115
  Transmission Date: 20080405
  Serious: Yes (Death)
  Sender: FDA-Public Use
  Company Number: CH-ASTRAZENECA-2007PK02357

PATIENT
  Age: 78 Year
  Sex: Female
  Weight: 91 kg

DRUGS (10)
  1. BELOC-ZOK 50 [Suspect]
     Dates: end: 20060905
  2. INSULIN MIXTARD 30 HM [Interacting]
     Indication: DIABETES MELLITUS
     Dosage: 30 DF 70%/100 IU
     Route: 058
     Dates: start: 20060905, end: 20060905
  3. METFIN [Interacting]
     Indication: DIABETES MELLITUS
     Dates: end: 20060905
  4. ACTOS [Interacting]
     Indication: DIABETES MELLITUS
     Dates: end: 20060905
  5. COVERSUM [Interacting]
     Dosage: 1.25/4 MG DAILY
     Dates: end: 20060905
  6. ASPIRIN [Interacting]
     Indication: PROPHYLAXIS
     Dates: end: 20060905
  7. INSULIN MIXTARD HM [Concomitant]
     Indication: DIABETES MELLITUS
     Dosage: 40 DF 70%/100 IU BID
     Route: 058
     Dates: end: 20060905
  8. TOREM [Concomitant]
     Dates: end: 20060905
  9. SORTIS [Concomitant]
     Dates: end: 20060905
  10. LANSOPRAZOLE [Concomitant]
     Dates: end: 20060905

REACTIONS (4)
  - DRUG INTERACTION [None]
  - HYPOGLYCAEMIA [None]
  - INCORRECT DOSE ADMINISTERED [None]
  - MEDICATION ERROR [None]
